FAERS Safety Report 16483425 (Version 1)
Quarter: 2019Q2

REPORT INFORMATION
  Report Type: Spontaneous
  Country: US (occurrence: US)
  Receive Date: 20190515
  Receipt Date: 20190515
  Transmission Date: 20190711
  Serious: Yes (Hospitalization)
  Sender: FDA-Public Use
  Company Number: None

PATIENT
  Age: 71 Year
  Sex: Male
  Weight: 70.3 kg

DRUGS (3)
  1. VELCADE [Suspect]
     Active Substance: BORTEZOMIB
     Dates: end: 20160114
  2. DEXAMETHASONE. [Suspect]
     Active Substance: DEXAMETHASONE
     Dates: end: 20160114
  3. LENALIDOMIDE (CC-5013) [Suspect]
     Active Substance: LENALIDOMIDE
     Dates: end: 20160114

REACTIONS (15)
  - Diabetic ketoacidosis [None]
  - Hyponatraemia [None]
  - Spinal cord compression [None]
  - Spinal deformity [None]
  - Renal failure [None]
  - Musculoskeletal pain [None]
  - Loss of personal independence in daily activities [None]
  - Arthralgia [None]
  - Bacterial infection [None]
  - Carotid artery stenosis [None]
  - Cerebrovascular accident [None]
  - Back pain [None]
  - Pain [None]
  - Staphylococcal infection [None]
  - Joint swelling [None]

NARRATIVE: CASE EVENT DATE: 20160107
